FAERS Safety Report 8673159 (Version 3)
Quarter: 2013Q1

REPORT INFORMATION
  Report Type: Spontaneous
  Country: DK (occurrence: FR)
  Receive Date: 20120719
  Receipt Date: 20130201
  Transmission Date: 20140127
  Serious: Yes (Hospitalization)
  Sender: FDA-Public Use
  Company Number: FR-FRI-1000037145

PATIENT
  Age: 89 Year
  Sex: Female

DRUGS (14)
  1. ESCITALOPRAM [Suspect]
     Indication: ANXIETY
     Dosage: 10 MG
     Route: 048
     Dates: start: 20120416, end: 20120515
  2. LOVENOX [Concomitant]
     Dosage: 4000 IU
     Route: 058
     Dates: start: 20120407, end: 20120503
  3. PRAVASTATIN SODIUM [Concomitant]
     Dosage: 20 MG
     Route: 048
  4. LEVOTHYROX [Concomitant]
     Dosage: 125 MCG
     Route: 048
  5. CARDENSIEL [Concomitant]
     Dosage: 2.5 MG
     Route: 048
  6. INEXIUM [Concomitant]
     Dosage: 20 MG
     Route: 048
     Dates: end: 20120515
  7. KARDEGIC [Concomitant]
     Dosage: 75 MG
     Route: 048
     Dates: start: 20120416
  8. TRANSIPEG [Concomitant]
     Dosage: 5.9 MG
     Route: 048
     Dates: start: 20120416
  9. PARACETAMOL [Concomitant]
     Route: 048
     Dates: start: 20120416
  10. LANTUS [Concomitant]
     Dosage: 18 IU
     Route: 050
     Dates: start: 20120407
  11. LASILIX [Concomitant]
     Dosage: 40 MG
     Route: 048
     Dates: start: 20120416
  12. TRIATEC [Concomitant]
     Dosage: 2.5 MG
     Route: 048
     Dates: start: 20120416
  13. ROCEPHINE [Concomitant]
     Dosage: 1 G
     Route: 050
     Dates: start: 20120407, end: 20120417
  14. ADANCOR [Concomitant]
     Dosage: 20 MG
     Route: 048
     Dates: start: 20120418

REACTIONS (1)
  - Pancytopenia [Not Recovered/Not Resolved]
